FAERS Safety Report 10308879 (Version 2)
Quarter: 2014Q4

REPORT INFORMATION
  Report Type: Spontaneous
  Country: US (occurrence: US)
  Receive Date: 20140716
  Receipt Date: 20141110
  Transmission Date: 20150528
  Serious: No
  Sender: FDA-Public Use
  Company Number: US-009507513-1407USA007328

PATIENT

DRUGS (1)
  1. COPPERTONE WATER BABIES SUNSCREEN SPF 70 PLUS [Suspect]
     Active Substance: AVOBENZONE\HOMOSALATE\OCTISALATE\OCTOCRYLENE\OXYBENZONE
     Indication: PRODUCT USED FOR UNKNOWN INDICATION
     Dosage: UNK, UNKNOWN
     Route: 061

REACTIONS (4)
  - Circumstance or information capable of leading to medication error [Unknown]
  - Rash [Unknown]
  - Unevaluable event [Unknown]
  - Product lot number issue [Unknown]
